FAERS Safety Report 8399581-5 (Version None)
Quarter: 2012Q2

REPORT INFORMATION
  Report Type: 
  Country: None (occurrence: None)
  Receive Date: 20120531
  Receipt Date: 20120521
  Transmission Date: 20120825
  Serious: Yes (Disabling)
  Sender: FDA-Public Use
  Company Number: IT-BRISTOL-MYERS SQUIBB COMPANY-16624512

PATIENT

DRUGS (3)
  1. IRINOTECAN HCL [Concomitant]
     Route: 042
     Dates: start: 20070101, end: 20071107
  2. TRIMETON [Concomitant]
     Route: 042
     Dates: start: 20070824, end: 20071107
  3. ERBITUX [Suspect]
     Indication: COLON CANCER
     Route: 042
     Dates: start: 20070824, end: 20071107

REACTIONS (3)
  - COGNITIVE DISORDER [None]
  - MOTOR DYSFUNCTION [None]
  - CONFUSIONAL STATE [None]
